FAERS Safety Report 5738204-8 (Version None)
Quarter: 2008Q2

REPORT INFORMATION
  Report Type: 
  Country: None (occurrence: None)
  Receive Date: 20080514
  Receipt Date: 20080502
  Transmission Date: 20081010
  Serious: Yes (Other)
  Sender: FDA-Public Use
  Company Number: US-PFIZER INC-2008019463

PATIENT
  Sex: Female
  Weight: 77 kg

DRUGS (9)
  1. LYRICA [Suspect]
     Indication: FIBROMYALGIA
     Dates: start: 20080226, end: 20080101
  2. VICODIN [Concomitant]
  3. ENALAPRIL MALEATE [Concomitant]
  4. XANAX [Concomitant]
  5. SINGULAIR [Concomitant]
  6. LISINOPRIL [Concomitant]
  7. ACETYLSALICYLIC ACID SRT [Concomitant]
  8. PREVACID [Concomitant]
  9. ALBUTEROL [Concomitant]

REACTIONS (7)
  - CEREBROVASCULAR ACCIDENT [None]
  - DYSPNOEA [None]
  - EYE SWELLING [None]
  - OEDEMA MOUTH [None]
  - ORAL DISORDER [None]
  - RESPIRATORY RATE INCREASED [None]
  - SWELLING [None]
